FAERS Safety Report 25527415 (Version 1)
Quarter: 2025Q3

REPORT INFORMATION
  Report Type: Other
  Country: US (occurrence: US)
  Receive Date: 20250708
  Receipt Date: 20250708
  Transmission Date: 20251020
  Serious: Yes (Other)
  Sender: DEXCEL LTD.
  Company Number: US-MLMSERVICE-20250620-PI549110-00031-2

PATIENT
  Age: 75 Year
  Sex: Female

DRUGS (3)
  1. OMEPRAZOLE [Interacting]
     Active Substance: OMEPRAZOLE
  2. MYCOPHENOLATE MOFETIL [Interacting]
     Active Substance: MYCOPHENOLATE MOFETIL
     Indication: Immune-mediated myositis
  3. PREDNISONE [Concomitant]
     Active Substance: PREDNISONE
     Indication: Immune-mediated myositis

REACTIONS (2)
  - Drug interaction [Unknown]
  - Drug ineffective [Unknown]
